FAERS Safety Report 9492374 (Version 2)
Quarter: 2014Q2

REPORT INFORMATION
  Report Type: Spontaneous
  Country: SE (occurrence: SE)
  Receive Date: 20130830
  Receipt Date: 20140516
  Transmission Date: 20141212
  Serious: Yes (Death, Hospitalization, Other)
  Sender: FDA-Public Use
  Company Number: SE-WATSON-2013-15704

PATIENT
  Sex: Male

DRUGS (6)
  1. METFORMIN ACTAVIS [Suspect]
     Indication: TYPE 2 DIABETES MELLITUS
     Dosage: 1.5 GMD
     Route: 048
     Dates: start: 20070809, end: 20130418
  2. ENALAPRIL [Concomitant]
     Indication: PRODUCT USED FOR UNKNOWN INDICATION
     Dosage: UNK, UNKNOWN
     Route: 065
  3. FOLACIN                            /00024201/ [Concomitant]
     Indication: PRODUCT USED FOR UNKNOWN INDICATION
     Dosage: UNK, UNKNOWN
  4. SALURES [Concomitant]
     Indication: PRODUCT USED FOR UNKNOWN INDICATION
  5. BEHEPAN [Concomitant]
     Indication: PRODUCT USED FOR UNKNOWN INDICATION
  6. NOVONORM [Concomitant]
     Indication: TYPE 2 DIABETES MELLITUS

REACTIONS (11)
  - Lactic acidosis [Fatal]
  - Dyspnoea [Fatal]
  - Tachycardia [Fatal]
  - Fatigue [Fatal]
  - Weight decreased [Fatal]
  - Decreased appetite [Fatal]
  - Cyanosis [Fatal]
  - Feeling cold [Fatal]
  - Tachypnoea [Fatal]
  - Lung disorder [Fatal]
  - Peripheral coldness [Fatal]
